FAERS Safety Report 12532055 (Version 1)
Quarter: 2016Q3

REPORT INFORMATION
  Report Type: Report from Study
  Country: US (occurrence: US)
  Receive Date: 20160706
  Receipt Date: 20160706
  Transmission Date: 20161109
  Serious: Yes (Other)
  Sender: FDA-Public Use
  Company Number: US-GILEAD-2016-0198996

PATIENT
  Age: 46 Year
  Sex: Female

DRUGS (3)
  1. AMBRISENTAN [Suspect]
     Active Substance: AMBRISENTAN
     Indication: PRODUCT USED FOR UNKNOWN INDICATION
     Dosage: 10 MG, QD
     Route: 065
     Dates: start: 20151009
  2. COUMADIN [Concomitant]
     Active Substance: WARFARIN SODIUM
  3. ADEMPAS [Concomitant]
     Active Substance: RIOCIGUAT

REACTIONS (9)
  - Hypotension [Unknown]
  - Limb discomfort [Unknown]
  - Tunnel vision [Unknown]
  - Syncope [Unknown]
  - Fatigue [Unknown]
  - Dizziness [Unknown]
  - Gastroenteritis viral [Unknown]
  - Vomiting [Unknown]
  - Vertigo [Unknown]

NARRATIVE: CASE EVENT DATE: 20160223
